FAERS Safety Report 8556323-8 (Version None)
Quarter: 2012Q3

REPORT INFORMATION
  Report Type: 
  Country: None (occurrence: None)
  Receive Date: 20120719
  Receipt Date: 20120710
  Transmission Date: 20120928
  Serious: Yes (Hospitalization)
  Sender: FDA-Public Use
  Company Number: CIP10001579

PATIENT
  Age: 69 Year
  Sex: Female

DRUGS (17)
  1. RISEDRONATE SODIUM [Suspect]
     Indication: OSTEOPOROSIS
     Dosage: 17.5 MG ONCE A WEEK, ORAL
     Route: 048
     Dates: start: 20090210
  2. LIVALO [Concomitant]
  3. LOXONIN /00890701/ (LOXOPROFEN) [Concomitant]
  4. AMARYL [Concomitant]
  5. CRESTOR [Concomitant]
  6. BEZATOL (BEZAFIBRATE) [Concomitant]
  7. VESICARE [Concomitant]
  8. LIMAPROST (LIMAPROST) [Concomitant]
  9. NORVASC [Concomitant]
  10. GLUFAST (MITIGLINIDE CALCIUM) [Concomitant]
  11. PHOSBIRON (HYALURONATE SODIUM) [Concomitant]
  12. RIZE /00624801/ (CLOTIAZEPAM) [Concomitant]
  13. BASEN (VOGLIBOSE) [Concomitant]
  14. ALOGLIPTIN (ALOGLIPTIN) [Concomitant]
  15. ZEFLOPTO [Suspect]
  16. ISALON (ALDIOXA) [Concomitant]
  17. MIGLITOL [Concomitant]

REACTIONS (8)
  - SCIATICA [None]
  - STRESS [None]
  - DIZZINESS [None]
  - INSOMNIA [None]
  - CONDITION AGGRAVATED [None]
  - LIGAMENT SPRAIN [None]
  - LUMBAR SPINAL STENOSIS [None]
  - INTERVERTEBRAL DISC PROTRUSION [None]
